FAERS Safety Report 7943551-5 (Version None)
Quarter: 2011Q4

REPORT INFORMATION
  Report Type: 
  Country: None (occurrence: None)
  Receive Date: 20111128
  Receipt Date: 20111118
  Transmission Date: 20120403
  Serious: Yes (Hospitalization)
  Sender: FDA-Public Use
  Company Number: PHHY2011DK101456

PATIENT
  Age: 83 Year
  Sex: Male
  Weight: 91 kg

DRUGS (6)
  1. WARFARIN SODIUM [Concomitant]
     Dosage: UNK
  2. CENTYL MED KALIUMKLORID [Concomitant]
     Dates: start: 19840101
  3. ALLOPURINOL [Suspect]
     Indication: ARTHRITIS
     Route: 048
  4. AMLODIPINE [Concomitant]
  5. SIMVASTATIN [Concomitant]
  6. RAMIPRIL [Concomitant]

REACTIONS (5)
  - MALAISE [None]
  - CIRCULATORY COLLAPSE [None]
  - SYNCOPE [None]
  - DIZZINESS [None]
  - LOSS OF CONSCIOUSNESS [None]
